FAERS Safety Report 25827362 (Version 1)
Quarter: 2025Q3

REPORT INFORMATION
  Report Type: Spontaneous
  Country: US (occurrence: None)
  Receive Date: 20250920
  Receipt Date: 20250920
  Transmission Date: 20251021
  Serious: No
  Sender: Harrow Health
  Company Number: US-HARROW-HAR-2025-US-00422

PATIENT
  Sex: Female

DRUGS (4)
  1. VEVYE [Suspect]
     Active Substance: CYCLOSPORINE
     Route: 047
     Dates: end: 20250707
  2. MELOXICAM [Concomitant]
     Active Substance: MELOXICAM
  3. OMEPRAZOLE [Concomitant]
     Active Substance: OMEPRAZOLE
  4. XYZAL [Concomitant]
     Active Substance: LEVOCETIRIZINE DIHYDROCHLORIDE

REACTIONS (2)
  - Ocular hyperaemia [Unknown]
  - Eye pain [Unknown]
